FAERS Safety Report 10594349 (Version 1)
Quarter: 2014Q4

REPORT INFORMATION
  Report Type: Spontaneous
  Country: ES (occurrence: ES)
  Receive Date: 20141119
  Receipt Date: 20141119
  Transmission Date: 20150529
  Serious: Yes (Other)
  Sender: FDA-Public Use
  Company Number: ALCN2014ES006459

PATIENT
  Age: 71 Year
  Sex: Female

DRUGS (1)
  1. TOBRADEX [Suspect]
     Active Substance: DEXAMETHASONE\TOBRAMYCIN
     Indication: POSTOPERATIVE CARE
     Dosage: 1 DF, QID
     Route: 047
     Dates: start: 20140726, end: 20140912

REACTIONS (2)
  - Inappropriate schedule of drug administration [Unknown]
  - Uveitis [Unknown]

NARRATIVE: CASE EVENT DATE: 20140915
